FAERS Safety Report 8286788-0 (Version None)
Quarter: 2012Q2

REPORT INFORMATION
  Report Type: 
  Country: None (occurrence: None)
  Receive Date: 20120416
  Receipt Date: 20120405
  Transmission Date: 20120825
  Serious: Yes (Hospitalization)
  Sender: FDA-Public Use
  Company Number: FR-NOVOPROD-348998

PATIENT
  Age: 64 Year
  Sex: Male

DRUGS (6)
  1. VICTOZA [Suspect]
     Indication: TYPE 2 DIABETES MELLITUS
     Dosage: UNK
     Route: 058
     Dates: start: 20111101, end: 20120106
  2. TARCEVA [Suspect]
     Dosage: 150 MG, QD
     Route: 065
     Dates: start: 20111205
  3. TARCEVA [Suspect]
     Dosage: UNK
     Route: 065
  4. METFORMIN HCL [Suspect]
     Dosage: UNK
     Route: 065
     Dates: end: 20120106
  5. TARCEVA [Suspect]
     Dosage: 100 MG, QD
     Route: 065
     Dates: start: 20111214, end: 20120106
  6. METFORMIN HCL [Suspect]
     Route: 065

REACTIONS (4)
  - WEIGHT DECREASED [None]
  - DERMATITIS ACNEIFORM [None]
  - DIARRHOEA [None]
  - VOMITING [None]
